FAERS Safety Report 5444992-0 (Version None)
Quarter: 2007Q3

REPORT INFORMATION
  Report Type: 
  Country: None (occurrence: None)
  Receive Date: 20070904
  Receipt Date: 20070904
  Transmission Date: 20080115
  Serious: No
  Sender: FDA-Public Use
  Company Number: None

PATIENT
  Age: 67 Year
  Sex: Female
  Weight: 79.8331 kg

DRUGS (1)
  1. WELCHOL [Suspect]
     Indication: BLOOD CHOLESTEROL
     Dosage: 3 TABLETS TWICE A DAY PO
     Route: 048
     Dates: start: 20070501, end: 20070812

REACTIONS (2)
  - HEADACHE [None]
  - MYALGIA [None]
